FAERS Safety Report 14558027 (Version 2)
Quarter: 2018Q1

REPORT INFORMATION
  Report Type: Spontaneous
  Country: RU (occurrence: RU)
  Receive Date: 20180221
  Receipt Date: 20180312
  Transmission Date: 20180509
  Serious: Yes (Death, Other)
  Sender: FDA-Public Use
  Company Number: RU-JNJFOC-20180226753

PATIENT
  Age: 78 Year
  Sex: Male
  Weight: 76 kg

DRUGS (4)
  1. CLOPIDOGREL [Concomitant]
     Active Substance: CLOPIDOGREL BISULFATE
     Route: 065
  2. XARELTO [Suspect]
     Active Substance: RIVAROXABAN
     Indication: PRODUCT USED FOR UNKNOWN INDICATION
     Route: 048
  3. CARDIOSEDIN KUTZ [Concomitant]
     Route: 065
  4. ACETYLSALICYLIC ACID [Concomitant]
     Active Substance: ASPIRIN
     Route: 065

REACTIONS (2)
  - Procedural complication [Fatal]
  - Pericardial haemorrhage [Fatal]
